FAERS Safety Report 8331810-6 (Version None)
Quarter: 2012Q2

REPORT INFORMATION
  Report Type: 
  Country: None (occurrence: None)
  Receive Date: 20120502
  Receipt Date: 20120420
  Transmission Date: 20120825
  Serious: No
  Sender: FDA-Public Use
  Company Number: US-AMGEN-USASP2012025321

PATIENT
  Age: 30 Year
  Sex: Female
  Weight: 108.84 kg

DRUGS (3)
  1. ENBREL [Suspect]
     Indication: PSORIATIC ARTHROPATHY
     Dosage: UNK
  2. METHOTREXATE [Concomitant]
     Dosage: SIX 2.5 MG TABLETS WEEKLY AND EIGHT 2.5 MG TABLETS WEEKLY
     Route: 048
     Dates: end: 20120301
  3. HUMIRA [Suspect]
     Dosage: 40 MG, 0.8 ML QWK
     Route: 058
     Dates: start: 20120328

REACTIONS (3)
  - PSORIATIC ARTHROPATHY [None]
  - DRUG INEFFECTIVE [None]
  - FURUNCLE [None]
